FAERS Safety Report 17767590 (Version 1)
Quarter: 2020Q2

REPORT INFORMATION
  Report Type: Spontaneous
  Country: BE (occurrence: BE)
  Receive Date: 20200511
  Receipt Date: 20200511
  Transmission Date: 20200714
  Serious: Yes (Other)
  Sender: FDA-Public Use
  Company Number: BE-AMGEN-BELSP2020073394

PATIENT

DRUGS (1)
  1. EVOLOCUMAB [Suspect]
     Active Substance: EVOLOCUMAB
     Indication: TYPE IIA HYPERLIPIDAEMIA
     Dosage: UNK
     Route: 065

REACTIONS (9)
  - Urticaria [Unknown]
  - Adverse event [Unknown]
  - Multiple sclerosis [Unknown]
  - Arthralgia [Unknown]
  - Acute coronary syndrome [Unknown]
  - Drug hypersensitivity [Unknown]
  - Transient ischaemic attack [Unknown]
  - Coronary revascularisation [Unknown]
  - Headache [Unknown]
